FAERS Safety Report 8036681-3 (Version None)
Quarter: 2012Q1

REPORT INFORMATION
  Report Type: 
  Country: None (occurrence: None)
  Receive Date: 20120109
  Receipt Date: 20111228
  Transmission Date: 20120608
  Serious: Yes (Other)
  Sender: FDA-Public Use
  Company Number: FK201103129

PATIENT
  Sex: Female

DRUGS (1)
  1. PROGESTERONE IN OIL INJ [Suspect]
     Indication: INFERTILITY
     Dosage: INTRAMUSCULAR
     Route: 030
     Dates: start: 20101109

REACTIONS (3)
  - FIBRIN D DIMER INCREASED [None]
  - EOSINOPHILIC PNEUMONIA [None]
  - ACUTE LUNG INJURY [None]
